FAERS Safety Report 15230822 (Version 1)
Quarter: 2018Q3

REPORT INFORMATION
  Report Type: Spontaneous
  Country: AU (occurrence: AU)
  Receive Date: 20180707
  Receipt Date: 20180707
  Transmission Date: 20181010
  Serious: Yes (Disabling, Other)
  Sender: FDA-Public Use
  Company Number: None

PATIENT
  Age: 8 Year
  Sex: Female
  Weight: 23 kg

DRUGS (4)
  1. MULTI VITAMIN [Concomitant]
     Active Substance: VITAMINS
  2. MONTELUKAST [Suspect]
     Active Substance: MONTELUKAST SODIUM
     Indication: ASTHMA
     Dosage: ?          QUANTITY:1 TABLET(S);OTHER ROUTE:CHEWED?
     Dates: start: 20110202, end: 20160111
  3. VENTOLIN [Concomitant]
     Active Substance: ALBUTEROL SULFATE
  4. MAGNESIUM [Concomitant]
     Active Substance: MAGNESIUM

REACTIONS (5)
  - Educational problem [None]
  - Aggression [None]
  - Eye disorder [None]
  - Social problem [None]
  - Suicide attempt [None]

NARRATIVE: CASE EVENT DATE: 20170202
